FAERS Safety Report 4438982-4 (Version None)
Quarter: 2004Q3

REPORT INFORMATION
  Report Type: 
  Country: None (occurrence: None)
  Receive Date: 20040830
  Receipt Date: 20040819
  Transmission Date: 20050211
  Serious: Yes (Hospitalization)
  Sender: FDA-Public Use
  Company Number: STA-AE-04-MTX-380

PATIENT
  Age: 70 Year
  Sex: Female

DRUGS (7)
  1. RHEUMATREX [Suspect]
     Indication: RHEUMATOID ARTHRITIS
     Dosage: 4MG 1X PER 1 WK, ORAL
     Route: 048
     Dates: start: 20040109, end: 20040124
  2. SULFASALAZINE [Suspect]
     Indication: RHEUMATOID ARTHRITIS
     Dosage: 1 G 1X PER 1 DAY, ORAL
     Route: 048
     Dates: start: 20020405
  3. RIMATIL (BUCILLAMINE) [Concomitant]
  4. SHIOSOL (SODIUM AUROTHIOMALATE) [Concomitant]
  5. LOXONIN (LOXOPROFEN SODIUM) [Concomitant]
  6. FOLIC ACID [Concomitant]
  7. SELTOUCH (FELBINAC) [Concomitant]

REACTIONS (6)
  - DRUG INTERACTION [None]
  - FATIGUE [None]
  - HEADACHE [None]
  - IMMUNOSUPPRESSION [None]
  - PNEUMONIA BACTERIAL [None]
  - UPPER RESPIRATORY TRACT INFECTION [None]
